FAERS Safety Report 15493801 (Version 1)
Quarter: 2018Q4

REPORT INFORMATION
  Report Type: Spontaneous
  Country: GB (occurrence: GB)
  Receive Date: 20181012
  Receipt Date: 20181012
  Transmission Date: 20190205
  Serious: Yes (Hospitalization)
  Sender: FDA-Public Use
  Company Number: GB-RARE DISEASE THERAPEUTICS, INC.-2055969

PATIENT
  Age: 23 Year
  Sex: Female

DRUGS (2)
  1. AZATHIOPRINE. [Suspect]
     Active Substance: AZATHIOPRINE
     Route: 065
     Dates: start: 2017
  2. PURIXAN [Suspect]
     Active Substance: MERCAPTOPURINE
     Route: 065
     Dates: start: 2017

REACTIONS (2)
  - Haematemesis [Unknown]
  - Dehydration [Unknown]
